FAERS Safety Report 5924783-4 (Version None)
Quarter: 2008Q4

REPORT INFORMATION
  Report Type: 
  Country: None (occurrence: None)
  Receive Date: 20081017
  Receipt Date: 20081009
  Transmission Date: 20090506
  Serious: Yes (Hospitalization, Other)
  Sender: FDA-Public Use
  Company Number: ZYD-AE-08-136

PATIENT
  Age: 53 Year
  Sex: Female

DRUGS (5)
  1. RIBAVIRIN [Suspect]
     Indication: HEPATITIS C VIRUS TEST
     Dosage: 600-1200MG QD - ORAL
     Route: 048
     Dates: start: 20060516
  2. PEGASYS [Suspect]
     Indication: HEPATITIS C VIRUS TEST
     Dosage: 45-180 MCG WEEKLY- SQ
     Route: 058
     Dates: start: 20060516
  3. HYDROCHLOROTHIAZIDE [Concomitant]
  4. ALLOPURINOL [Concomitant]
  5. POTASSIUM CHLORIDE [Concomitant]

REACTIONS (42)
  - ALANINE AMINOTRANSFERASE INCREASED [None]
  - ALOPECIA [None]
  - AMNESIA [None]
  - ANAEMIA [None]
  - APHTHOUS STOMATITIS [None]
  - ARTHRALGIA [None]
  - ASPARTATE AMINOTRANSFERASE INCREASED [None]
  - COLD SWEAT [None]
  - CONTUSION [None]
  - COUGH [None]
  - DIARRHOEA [None]
  - DYSGEUSIA [None]
  - DYSPNOEA [None]
  - FALL [None]
  - FATIGUE [None]
  - FEELING OF BODY TEMPERATURE CHANGE [None]
  - FRACTURED SACRUM [None]
  - GINGIVAL PAIN [None]
  - HAEMORRHAGE [None]
  - HEART RATE DECREASED [None]
  - HEPATITIS C RNA INCREASED [None]
  - HYPOTHYROIDISM [None]
  - IMMUNE SYSTEM DISORDER [None]
  - INCREASED UPPER AIRWAY SECRETION [None]
  - IRRITABILITY [None]
  - LACERATION [None]
  - LIVER INJURY [None]
  - MENTAL IMPAIRMENT [None]
  - NASAL CONGESTION [None]
  - NASAL DRYNESS [None]
  - NAUSEA [None]
  - NEOPLASM SKIN [None]
  - OEDEMA PERIPHERAL [None]
  - ORAL HERPES [None]
  - PAROSMIA [None]
  - PHARYNGEAL DISORDER [None]
  - PLATELET COUNT DECREASED [None]
  - RASH PRURITIC [None]
  - SELF INJURIOUS BEHAVIOUR [None]
  - SKIN INFECTION [None]
  - TOOTHACHE [None]
  - WEIGHT DECREASED [None]
